FAERS Safety Report 4926586-6 (Version None)
Quarter: 2006Q1

REPORT INFORMATION
  Report Type: 
  Country: None (occurrence: None)
  Receive Date: 20060228
  Receipt Date: 20050505
  Transmission Date: 20060701
  Serious: No
  Sender: FDA-Public Use
  Company Number: US-GLAXOSMITHKLINE-A0557553A

PATIENT
  Age: 86 Year
  Sex: Male
  Weight: 72.7 kg

DRUGS (8)
  1. LAMICTAL [Suspect]
     Indication: EPILEPSY
     Dosage: 25MG UNKNOWN
     Route: 048
  2. DEPAKOTE [Concomitant]
  3. DILANTIN [Concomitant]
  4. MULTIPLE MEDICATIONS [Concomitant]
     Route: 065
  5. NIFEDIPINE [Concomitant]
     Route: 048
  6. LEXAPRO [Concomitant]
     Route: 048
  7. ATENOLOL [Concomitant]
     Route: 048
  8. FOSAMAX [Concomitant]
     Route: 048

REACTIONS (1)
  - RASH [None]
